FAERS Safety Report 11431824 (Version 2)
Quarter: 2015Q4

REPORT INFORMATION
  Report Type: Spontaneous
  Country: GB (occurrence: GB)
  Receive Date: 20150828
  Receipt Date: 20151006
  Transmission Date: 20160304
  Serious: Yes (Hospitalization)
  Sender: FDA-Public Use
  Company Number: GB-VERTEX PHARMACEUTICALS-2015-003459

PATIENT
  Sex: Male
  Weight: 84 kg

DRUGS (21)
  1. BUDESONIDE. [Concomitant]
     Active Substance: BUDESONIDE
     Dosage: 1 PUFF, BID
     Route: 055
  2. CEFACLOR. [Concomitant]
     Active Substance: CEFACLOR
     Dosage: 750 MG, BID
     Route: 048
  3. CYCLIZINE [Concomitant]
     Active Substance: CYCLIZINE
     Indication: VOMITING
  4. PIPERACILLIN [Concomitant]
     Active Substance: PIPERACILLIN
     Dosage: 4.5 G, TID
     Route: 042
  5. URSODEOXYCHOLIC ACID [Concomitant]
     Active Substance: URSODIOL
     Dosage: 500 MG, BID
     Route: 048
  6. CYCLIZINE [Concomitant]
     Active Substance: CYCLIZINE
     Indication: NAUSEA
     Dosage: 50 MG, TID
     Route: 048
  7. GAVISCON [Concomitant]
     Active Substance: ALUMINUM HYDROXIDE\MAGNESIUM CARBONATE
     Indication: DYSPEPSIA
     Dosage: 10 ML, QID
     Route: 048
  8. PARACETAMOL [Concomitant]
     Active Substance: ACETAMINOPHEN
     Indication: PAIN
     Dosage: UNK, PRN
     Route: 048
  9. CETIRIZINE [Concomitant]
     Active Substance: CETIRIZINE HYDROCHLORIDE
     Dosage: 10 MG, QD
     Route: 048
  10. STERIMAR                           /01339701/ [Concomitant]
     Active Substance: SEA WATER
     Dosage: 2 SPRAYS , BID
     Route: 045
  11. LANSOPRAZOLE. [Concomitant]
     Active Substance: LANSOPRAZOLE
     Dosage: 30 MG, BID
     Route: 048
  12. TERBUTALINE [Concomitant]
     Active Substance: TERBUTALINE
     Dosage: TWO PUFFS , QID
     Route: 055
  13. CALCICHEW D3 FORTE [Concomitant]
     Active Substance: CALCIUM\CHOLECALCIFEROL
     Dosage: 1 TABLET, QD
  14. BENZYDAMINE [Concomitant]
     Active Substance: BENZYDAMINE
     Dosage: 4 SPRAY, QD
     Route: 048
  15. DIHYDROCODEINE [Concomitant]
     Active Substance: DIHYDROCODEINE
     Dosage: 30 TO 60 MG, QID
  16. TRAMADOL. [Concomitant]
     Active Substance: TRAMADOL
     Dosage: 100 MG, QID
     Route: 048
  17. FLIXONASE [Concomitant]
     Active Substance: FLUTICASONE PROPIONATE
     Dosage: UNK, BID
     Route: 045
  18. FLUTICASONE [Concomitant]
     Active Substance: FLUTICASONE\FLUTICASONE PROPIONATE
     Dosage: 6 DROPS
     Route: 045
  19. LACTULOSE. [Concomitant]
     Active Substance: LACTULOSE
     Indication: CONSTIPATION
     Dosage: 15 ML, BID
     Route: 048
  20. CHLORAMPHENICOL [Concomitant]
     Active Substance: CHLORAMPHENICOL
     Dosage: UNK, QID
  21. KALYDECO [Suspect]
     Active Substance: IVACAFTOR
     Indication: CYSTIC FIBROSIS
     Dosage: 150 MG, BID
     Route: 048
     Dates: start: 20130621

REACTIONS (2)
  - Tonsillitis [Unknown]
  - Lower respiratory tract infection [Unknown]
